FAERS Safety Report 9088127 (Version 2)
Quarter: 2013Q2

REPORT INFORMATION
  Report Type: Spontaneous
  Country: US (occurrence: US)
  Receive Date: 20130218
  Receipt Date: 20130404
  Transmission Date: 20140414
  Serious: Yes (Disabling, Other)
  Sender: FDA-Public Use
  Company Number: PHEH2013US003705

PATIENT
  Sex: Female

DRUGS (8)
  1. DIOVAN HCT [Suspect]
     Dosage: 1 DF, (160 MG VALS AND 12.5 MG HCTZ), UKN
     Route: 048
  2. DICLOFENAC [Suspect]
     Dosage: UNK UKN, UNK
  3. HYDROCODONE [Suspect]
  4. GLIPIZIDE [Concomitant]
  5. ACTOS [Concomitant]
  6. FOLIC ACID [Concomitant]
  7. METHOTREXATE [Concomitant]
  8. METFORMIN [Concomitant]

REACTIONS (5)
  - Arthritis [Unknown]
  - Muscular weakness [Unknown]
  - Finger deformity [Unknown]
  - Feeling abnormal [Unknown]
  - Mental impairment [Unknown]
